FAERS Safety Report 10246276 (Version 2)
Quarter: 2014Q2

REPORT INFORMATION
  Report Type: Spontaneous
  Country: US (occurrence: US)
  Receive Date: 20140619
  Receipt Date: 20140620
  Transmission Date: 20141212
  Serious: No
  Sender: FDA-Public Use
  Company Number: US-009507513-1406USA002261

PATIENT
  Age: 75 Year
  Sex: Female
  Weight: 88.44 kg

DRUGS (4)
  1. OXYTROL FOR WOMEN [Suspect]
     Indication: URINARY INCONTINENCE
     Dosage: 1 DF, Q4D
     Route: 062
     Dates: start: 20140504, end: 20140519
  2. TOVIAZ [Suspect]
     Indication: URINARY INCONTINENCE
     Dosage: UNK, UNKNOWN
  3. ADVIL [Concomitant]
     Indication: SPINAL COLUMN STENOSIS
     Dosage: UNK, UNKNOWN
  4. CORTISONE [Concomitant]
     Indication: SPINAL COLUMN STENOSIS
     Dosage: UNK, UNKNOWN

REACTIONS (4)
  - Application site discolouration [Recovered/Resolved]
  - Off label use [Unknown]
  - Drug ineffective [Unknown]
  - Product adhesion issue [Unknown]
